FAERS Safety Report 6070064-0 (Version None)
Quarter: 2009Q1

REPORT INFORMATION
  Report Type: 
  Country: None (occurrence: None)
  Receive Date: 20090129
  Receipt Date: 20090122
  Transmission Date: 20090719
  Serious: Yes (Death)
  Sender: FDA-Public Use
  Company Number: AECAN200800268

PATIENT
  Age: 62 Year
  Sex: Female

DRUGS (2)
  1. ALBUMIN (HUMAN) [Suspect]
     Indication: DRUG USE FOR UNKNOWN INDICATION
     Dosage: 100 ML;IV
     Route: 042
     Dates: start: 20081029, end: 20081029
  2. ASPIRIN [Concomitant]

REACTIONS (2)
  - HYPOTENSION [None]
  - INFUSION RELATED REACTION [None]
